FAERS Safety Report 6248991-0 (Version None)
Quarter: 2009Q2

REPORT INFORMATION
  Report Type: 
  Country: None (occurrence: None)
  Receive Date: 20090624
  Receipt Date: 20090624
  Transmission Date: 20091009
  Serious: Yes (Life-Threatening, Other)
  Sender: FDA-Public Use
  Company Number: None

PATIENT
  Age: 25 Year
  Sex: Female
  Weight: 63.05 kg

DRUGS (1)
  1. LEVAQUIN [Suspect]
     Indication: PYELONEPHRITIS
     Dosage: 500 MG 1XDAILY FOR 10 DAY PO
     Route: 048
     Dates: start: 20090611, end: 20090618

REACTIONS (4)
  - ARRHYTHMIA [None]
  - DYSPNOEA [None]
  - HYPOAESTHESIA [None]
  - PALPITATIONS [None]
